FAERS Safety Report 15846121 (Version 1)
Quarter: 2019Q1

REPORT INFORMATION
  Report Type: Spontaneous
  Country: US (occurrence: US)
  Receive Date: 20190120
  Receipt Date: 20190120
  Transmission Date: 20190417
  Serious: No
  Sender: FDA-Public Use
  Company Number: US-DEXPHARM-20180872

PATIENT
  Age: 70 Year
  Sex: Male

DRUGS (1)
  1. OMEPRAZOLE DELAYED RELEASE ORALLY DISINTEGRATING STRAWBERRY TABLETS 20 [Suspect]
     Active Substance: OMEPRAZOLE
     Indication: DYSPEPSIA
     Dosage: LESS THAN 20 MG, QD
     Route: 048
     Dates: start: 201810

REACTIONS (2)
  - Product use issue [None]
  - Drug effect incomplete [Unknown]

NARRATIVE: CASE EVENT DATE: 201810
